FAERS Safety Report 10368094 (Version 1)
Quarter: 2014Q1

REPORT INFORMATION
  Report Type: Spontaneous
  Country: US (occurrence: None)
  Receive Date: 20140306
  Receipt Date: 20140306
  Transmission Date: 20141002
  Serious: Yes (Other)
  Sender: FDA-Public Use
  Company Number: 163-21880-13083127

PATIENT
  Age: 71 Year
  Sex: Female
  Weight: 65.77 kg

DRUGS (1)
  1. REVLIMID [Suspect]
     Indication: PLASMA CELL MYELOMA
     Route: 048
     Dates: start: 20130624

REACTIONS (11)
  - Deep vein thrombosis [None]
  - Thrombocytopenia [None]
  - Muscular weakness [None]
  - Muscle spasms [None]
  - Neuropathy peripheral [None]
  - Nasal congestion [None]
  - Abdominal pain [None]
  - Rash pruritic [None]
  - Diarrhoea [None]
  - Constipation [None]
  - Fatigue [None]
